FAERS Safety Report 10904585 (Version 1)
Quarter: 2015Q1

REPORT INFORMATION
  Report Type: Report from Study
  Country: RU (occurrence: RU)
  Receive Date: 20150311
  Receipt Date: 20150311
  Transmission Date: 20150721
  Serious: Yes (Other)
  Sender: FDA-Public Use
  Company Number: RU-MYLANLABS-2015M1007411

PATIENT

DRUGS (5)
  1. MITOXANTRONE [Suspect]
     Active Substance: MITOXANTRONE HYDROCHLORIDE
     Indication: MULTIPLE SCLEROSIS
     Dosage: 20MG ON DAY 2
     Route: 041
  2. METHYLPREDNISOLONE. [Interacting]
     Active Substance: METHYLPREDNISOLONE
     Indication: MULTIPLE SCLEROSIS
     Dosage: 1000MG ON DAYS 1, 2, 3, 14
     Route: 041
  3. PARACETAMOL [Concomitant]
     Active Substance: ACETAMINOPHEN
     Indication: PREMEDICATION
     Dosage: 1G 30MIN PRIOR TO RITUXIMAB INFUSION
     Route: 065
  4. RITUXIMAB [Interacting]
     Active Substance: RITUXIMAB
     Indication: MULTIPLE SCLEROSIS
     Dosage: 1000MG ON DAYS 2, 14
     Route: 041
  5. PIRITON [Concomitant]
     Active Substance: CHLORPHENIRAMINE MALEATE
     Indication: PREMEDICATION
     Dosage: 1G 30MIN PRIOR TO RITUXIMAB INFUSION
     Route: 065

REACTIONS (4)
  - Drug interaction [Recovered/Resolved]
  - Malaise [Unknown]
  - Neutropenia [Recovered/Resolved]
  - Fatigue [Unknown]
